FAERS Safety Report 20203752 (Version 1)
Quarter: 2021Q4

REPORT INFORMATION
  Report Type: Spontaneous
  Country: UA (occurrence: UA)
  Receive Date: 20211219
  Receipt Date: 20211219
  Transmission Date: 20220304
  Serious: Yes (Hospitalization)
  Sender: FDA-Public Use
  Company Number: UA-NOVARTISPH-NVSC2021UA288863

PATIENT
  Age: 26 Month
  Sex: Female

DRUGS (1)
  1. ZOLGENSMA [Suspect]
     Active Substance: ONASEMNOGENE ABEPARVOVEC-XIOI
     Indication: Spinal muscular atrophy
     Dosage: UNK
     Route: 065
     Dates: start: 20210708

REACTIONS (2)
  - Upper respiratory tract infection [Not Recovered/Not Resolved]
  - Body temperature increased [Not Recovered/Not Resolved]
